FAERS Safety Report 23642630 (Version 1)
Quarter: 2024Q1

REPORT INFORMATION
  Report Type: Spontaneous
  Country: US (occurrence: None)
  Receive Date: 20240315
  Receipt Date: 20240315
  Transmission Date: 20240409
  Serious: Yes (Other)
  Sender: FDA-Public Use
  Company Number: None

PATIENT
  Age: 58 Year
  Sex: Female
  Weight: 103.87 kg

DRUGS (1)
  1. METHYLPHENIDATE [Suspect]
     Active Substance: METHYLPHENIDATE
     Indication: Attention deficit hyperactivity disorder
     Dosage: 1 TABLET DAILY BY MOUTH
     Route: 048
     Dates: start: 20240219, end: 20240226

REACTIONS (3)
  - Tachycardia [None]
  - Headache [None]
  - Cognitive disorder [None]

NARRATIVE: CASE EVENT DATE: 20240221
